FAERS Safety Report 9133664 (Version 1)
Quarter: 2013Q1

REPORT INFORMATION
  Report Type: Spontaneous
  Country: FR (occurrence: FR)
  Receive Date: 20130302
  Receipt Date: 20130302
  Transmission Date: 20140127
  Serious: Yes (Hospitalization, Disabling)
  Sender: FDA-Public Use
  Company Number: FR-TEVA-387657ISR

PATIENT
  Age: 23 Year
  Sex: Female
  Weight: 50 kg

DRUGS (1)
  1. LEELOO [Suspect]
     Indication: CONTRACEPTION
     Dosage: LEVONORGESTREL 0.1 MG/ ETHINYLESTRADIOL 0.02 MG
     Route: 048
     Dates: start: 201201, end: 20120729

REACTIONS (2)
  - Ischaemic stroke [Recovered/Resolved with Sequelae]
  - Locked-in syndrome [Recovered/Resolved with Sequelae]
